FAERS Safety Report 4678964-0 (Version None)
Quarter: 2005Q2

REPORT INFORMATION
  Report Type: 
  Country: None (occurrence: None)
  Receive Date: 20050525
  Receipt Date: 20050209
  Transmission Date: 20051028
  Serious: No
  Sender: FDA-Public Use
  Company Number: 212348

PATIENT
  Age: 36 Year
  Sex: Male
  Weight: 88.4 kg

DRUGS (2)
  1. RAPTIVA [Suspect]
     Indication: PSORIASIS
     Dosage: 0.6 ML, SINGLE, SUBCUTANEOUS
     Route: 058
     Dates: start: 20050204, end: 20050204
  2. DOXYCYCLINE [Concomitant]

REACTIONS (2)
  - HEADACHE [None]
  - PROSTATITIS [None]
